FAERS Safety Report 8333853-5 (Version None)
Quarter: 2012Q2

REPORT INFORMATION
  Report Type: 
  Country: None (occurrence: None)
  Receive Date: 20120503
  Receipt Date: 20120425
  Transmission Date: 20120825
  Serious: Yes (Other)
  Sender: FDA-Public Use
  Company Number: US-PFIZER INC-2012068397

PATIENT
  Sex: Male

DRUGS (4)
  1. DICLOFENAC [Concomitant]
     Dosage: UNK
  2. NEURONTIN [Suspect]
     Dosage: 300 MG, 3X/DAY
     Route: 048
  3. FLEXERIL [Concomitant]
     Dosage: UNK
  4. TRAMADOL [Concomitant]
     Dosage: UNK

REACTIONS (3)
  - BACK PAIN [None]
  - SCIATICA [None]
  - IMPAIRED WORK ABILITY [None]
